FAERS Safety Report 21999661 (Version 2)
Quarter: 2023Q2

REPORT INFORMATION
  Report Type: Spontaneous
  Country: US (occurrence: US)
  Receive Date: 20230216
  Receipt Date: 20230607
  Transmission Date: 20230722
  Serious: No
  Sender: FDA-Public Use
  Company Number: US-Kaleo, Inc.-2022KL000094

PATIENT
  Age: 9 Year
  Sex: Male

DRUGS (1)
  1. AUVI-Q [Suspect]
     Active Substance: EPINEPHRINE
     Indication: Anaphylactic reaction

REACTIONS (4)
  - Device issue [Not Recovered/Not Resolved]
  - No device malfunction [Not Recovered/Not Resolved]
  - Device optical issue [Not Recovered/Not Resolved]
  - Device audio issue [Unknown]

NARRATIVE: CASE EVENT DATE: 20221213
